FAERS Safety Report 16781940 (Version 2)
Quarter: 2019Q3

REPORT INFORMATION
  Report Type: Report from Study
  Country: PA (occurrence: PA)
  Receive Date: 20190906
  Receipt Date: 20190925
  Transmission Date: 20191005
  Serious: Yes (Disabling, Other)
  Sender: FDA-Public Use
  Company Number: PHHY2016PA096363

PATIENT
  Age: 76 Year
  Sex: Male
  Weight: 140 kg

DRUGS (8)
  1. PHENOBARBITAL. [Concomitant]
     Active Substance: PHENOBARBITAL
     Indication: EPILEPSY
     Dosage: 2 DF, QD
     Route: 065
  2. SANDOSTATIN LAR DEPOT [Suspect]
     Active Substance: OCTREOTIDE ACETATE
     Dosage: 20 MG, QMO
     Route: 030
     Dates: start: 20180809
  3. SANDOSTATIN LAR DEPOT [Suspect]
     Active Substance: OCTREOTIDE ACETATE
     Dosage: UNK
     Route: 030
     Dates: start: 20160620
  4. PHENOBARBITAL. [Concomitant]
     Active Substance: PHENOBARBITAL
     Indication: SEDATIVE THERAPY
  5. SANDOSTATIN LAR DEPOT [Suspect]
     Active Substance: OCTREOTIDE ACETATE
     Indication: NEUROENDOCRINE TUMOUR
     Dosage: 1 DF, QMO
     Route: 030
     Dates: start: 2016
  6. EPAMIN [Concomitant]
     Active Substance: PHENYTOIN SODIUM
     Indication: EPILEPSY
     Dosage: 1 DF, QD
     Route: 065
  7. SANDOSTATIN LAR DEPOT [Suspect]
     Active Substance: OCTREOTIDE ACETATE
     Dosage: UNK
     Route: 030
     Dates: start: 20180507
  8. SANDOSTATIN LAR DEPOT [Suspect]
     Active Substance: OCTREOTIDE ACETATE
     Dosage: UNK
     Route: 030
     Dates: start: 20180709

REACTIONS (17)
  - Depression [Unknown]
  - Neoplasm [Not Recovered/Not Resolved]
  - Mental disorder [Unknown]
  - Fracture [Unknown]
  - Weight increased [Unknown]
  - Foot fracture [Unknown]
  - Memory impairment [Unknown]
  - Malaise [Unknown]
  - Dementia Alzheimer^s type [Unknown]
  - Gait inability [Recovering/Resolving]
  - Hip fracture [Recovering/Resolving]
  - Arrhythmia [Unknown]
  - Spinal disorder [Unknown]
  - Pain in extremity [Unknown]
  - Apathy [Unknown]
  - Fall [Recovering/Resolving]
  - Osteoarthritis [Unknown]

NARRATIVE: CASE EVENT DATE: 201806
